FAERS Safety Report 18594806 (Version 1)
Quarter: 2020Q4

REPORT INFORMATION
  Report Type: Spontaneous
  Country: FR (occurrence: FR)
  Receive Date: 20201209
  Receipt Date: 20201209
  Transmission Date: 20210114
  Serious: Yes (Life-Threatening)
  Sender: FDA-Public Use
  Company Number: FR-MYLANLABS-2020M1099375

PATIENT
  Age: 66 Year
  Sex: Female
  Weight: 100 kg

DRUGS (4)
  1. HYPNOMIDATE                        /00466801/ [Suspect]
     Active Substance: ETOMIDATE
     Indication: INDUCTION OF ANAESTHESIA
     Dosage: 20 MILLIGRAM, TOTAL
     Route: 041
     Dates: start: 20201020, end: 20201020
  2. REMIFENTANIL MYLAN [Suspect]
     Active Substance: REMIFENTANIL
     Indication: INDUCTION OF ANAESTHESIA
     Dosage: SEE COMMENTS
     Route: 041
     Dates: start: 20201020, end: 20201020
  3. ROCURONIUM [Suspect]
     Active Substance: ROCURONIUM BROMIDE
     Indication: INDUCTION OF ANAESTHESIA
     Dosage: 60 MILLIGRAM, TOTAL
     Route: 041
     Dates: start: 20201020, end: 20201020
  4. PROPOFOL LIPURO [Suspect]
     Active Substance: PROPOFOL
     Indication: INDUCTION OF ANAESTHESIA
     Dosage: 60 MILLIGRAM, TOTAL
     Route: 041
     Dates: start: 20201020, end: 20201020

REACTIONS (2)
  - Haemodynamic instability [Recovered/Resolved]
  - Hypotension [Recovered/Resolved]

NARRATIVE: CASE EVENT DATE: 20201020
